FAERS Safety Report 22314275 (Version 2)
Quarter: 2023Q2

REPORT INFORMATION
  Report Type: Report from Study
  Country: CA (occurrence: CA)
  Receive Date: 20230512
  Receipt Date: 20230515
  Transmission Date: 20230721
  Serious: Yes (Life-Threatening)
  Sender: FDA-Public Use
  Company Number: CA-GLAXOSMITHKLINE-CACH2023HLN020014

PATIENT

DRUGS (9)
  1. IBUPROFEN [Suspect]
     Active Substance: IBUPROFEN
     Indication: Product used for unknown indication
     Dosage: 400 MG, (TOTAL)
     Route: 048
     Dates: start: 20230411, end: 20230411
  2. EPINEPHRIN [Concomitant]
     Indication: Product used for unknown indication
     Dosage: 0.5 MG, (TOTAL)
     Route: 030
     Dates: start: 20230411, end: 20230411
  3. DIPHENHYDRAMINE [Concomitant]
     Active Substance: DIPHENHYDRAMINE
     Indication: Product used for unknown indication
     Dosage: 50 MG (TOTAL)
     Route: 042
     Dates: start: 20230411, end: 20230411
  4. HYDROCORTISONE [Concomitant]
     Active Substance: HYDROCORTISONE
     Indication: Product used for unknown indication
     Dosage: 250 MG
     Route: 042
     Dates: start: 20230411, end: 20230411
  5. ZOFRAN [Concomitant]
     Active Substance: ONDANSETRON HYDROCHLORIDE
     Indication: Product used for unknown indication
     Dosage: 8 MG (TOTAL)
     Route: 042
     Dates: start: 20230411, end: 20230411
  6. VAPONEPHRINE [Concomitant]
     Indication: Product used for unknown indication
     Dosage: 5 MG
     Route: 055
     Dates: start: 20230411, end: 20230411
  7. VENTOLIN [Concomitant]
     Active Substance: ALBUTEROL SULFATE
     Indication: Product used for unknown indication
     Dosage: 2.5 MG, (ASNECESSARY)
     Route: 055
     Dates: start: 20230411, end: 20230411
  8. PREDNISONE [Concomitant]
     Active Substance: PREDNISONE
     Indication: Product used for unknown indication
     Dosage: 50 MG, (TOTAL)
     Route: 048
     Dates: start: 20230411, end: 20230411
  9. COMBIVENT [Concomitant]
     Active Substance: ALBUTEROL SULFATE\IPRATROPIUM BROMIDE
     Indication: Product used for unknown indication
     Dosage: 5 MG, (ASNECESSARY)
     Route: 055
     Dates: start: 20230411, end: 20230411

REACTIONS (1)
  - Drug hypersensitivity [Recovered/Resolved]

NARRATIVE: CASE EVENT DATE: 20230411
